FAERS Safety Report 20126499 (Version 1)
Quarter: 2021Q4

REPORT INFORMATION
  Report Type: Spontaneous
  Country: US (occurrence: None)
  Receive Date: 20211129
  Receipt Date: 20211129
  Transmission Date: 20220303
  Serious: Yes (Hospitalization)
  Sender: FDA-Public Use
  Company Number: None

PATIENT
  Age: 43 Year
  Sex: Male

DRUGS (1)
  1. DEFERASIROX [Suspect]
     Active Substance: DEFERASIROX
     Indication: Sickle cell anaemia
     Dosage: FREQUENCY : TAKE 3 TABLETS BY MOUTH ONCE A DAY ON ODD DAYS, ?AND TAKE 4 TABLETS ON EVEN DAYS
     Route: 048
     Dates: start: 202106

REACTIONS (6)
  - Sickle cell anaemia with crisis [None]
  - Weight decreased [None]
  - Therapy non-responder [None]
  - Oxygen saturation decreased [None]
  - Hypopnoea [None]
  - Acute lung injury [None]

NARRATIVE: CASE EVENT DATE: 20211115
